FAERS Safety Report 4698224-1 (Version None)
Quarter: 2005Q2

REPORT INFORMATION
  Report Type: 
  Country: None (occurrence: None)
  Receive Date: 20050623
  Receipt Date: 20050613
  Transmission Date: 20051028
  Serious: Yes (Life-Threatening)
  Sender: FDA-Public Use
  Company Number: DE-BRISTOL-MYERS SQUIBB COMPANY-13006150

PATIENT
  Age: 58 Year
  Sex: Female

DRUGS (1)
  1. COAPROVEL [Suspect]
     Indication: HYPERTENSION
     Route: 048
     Dates: start: 20050414, end: 20050526

REACTIONS (4)
  - CARDIOVASCULAR DISORDER [None]
  - HYPERTENSIVE CRISIS [None]
  - HYPOTENSION [None]
  - VERTIGO [None]
